FAERS Safety Report 8192332-9 (Version None)
Quarter: 2012Q1

REPORT INFORMATION
  Report Type: 
  Country: None (occurrence: None)
  Receive Date: 20120307
  Receipt Date: 20120227
  Transmission Date: 20120608
  Serious: Yes (Hospitalization, Other)
  Sender: FDA-Public Use
  Company Number: US-ASTRAZENECA-2011SE73550

PATIENT
  Age: 67 Year
  Sex: Female

DRUGS (2)
  1. NEXIUM [Suspect]
     Route: 048
  2. SYMBICORT [Suspect]
     Dosage: UNKNOWN
     Route: 055

REACTIONS (7)
  - INTERVERTEBRAL DISC DEGENERATION [None]
  - BACK PAIN [None]
  - LUMBAR RADICULOPATHY [None]
  - FALL [None]
  - FOOT FRACTURE [None]
  - FACET JOINT SYNDROME [None]
  - LUMBAR SPINAL STENOSIS [None]
